FAERS Safety Report 7388035-0 (Version None)
Quarter: 2011Q2

REPORT INFORMATION
  Report Type: 
  Country: None (occurrence: None)
  Receive Date: 20110401
  Receipt Date: 20110328
  Transmission Date: 20111010
  Serious: No
  Sender: FDA-Public Use
  Company Number: US-PFIZER INC-2011069349

PATIENT
  Sex: Male
  Weight: 98.413 kg

DRUGS (1)
  1. ADVIL LIQUI-GELS [Suspect]
     Dosage: UNK, 3X/DAY
     Route: 048
     Dates: start: 20110326

REACTIONS (1)
  - HYPERSOMNIA [None]
